FAERS Safety Report 5717319-4 (Version None)
Quarter: 2008Q2

REPORT INFORMATION
  Report Type: 
  Country: None (occurrence: None)
  Receive Date: 20080424
  Receipt Date: 20080424
  Transmission Date: 20081010
  Serious: No
  Sender: FDA-Public Use
  Company Number: None

PATIENT

DRUGS (4)
  1. ELOXATIN [Suspect]
  2. LEUCOVORIN CALCIUM [Concomitant]
  3. FLUOROURACIL [Suspect]
  4. OXALIPLATIN [Suspect]

REACTIONS (3)
  - NEUTROPENIA [None]
  - PYREXIA [None]
  - UNEVALUABLE EVENT [None]
